FAERS Safety Report 9669917 (Version 1)
Quarter: 2013Q4

REPORT INFORMATION
  Report Type: Report from Study
  Country: US (occurrence: US)
  Receive Date: 20131105
  Receipt Date: 20131105
  Transmission Date: 20140711
  Serious: Yes (Hospitalization, Other)
  Sender: FDA-Public Use
  Company Number: US-ABBVIE-13P-163-1163097-00

PATIENT
  Age: 58 Year
  Sex: Male

DRUGS (2)
  1. HUMIRA [Suspect]
     Indication: PSORIATIC ARTHROPATHY
     Dates: start: 2005
  2. FORTESTA [Concomitant]
     Indication: BLOOD TESTOSTERONE
     Dosage: 4 PUMPS

REACTIONS (3)
  - Haemorrhoids [Unknown]
  - Psoriatic arthropathy [Unknown]
  - Myocardial infarction [Unknown]
